FAERS Safety Report 5592276-2 (Version None)
Quarter: 2008Q1

REPORT INFORMATION
  Report Type: 
  Country: None (occurrence: None)
  Receive Date: 20080115
  Receipt Date: 20080114
  Transmission Date: 20080703
  Serious: Yes (Hospitalization)
  Sender: FDA-Public Use
  Company Number: US-BOEHRINGER INGELHEIM PHARMACEUTICALS, INC.-2007-BP-21645BP

PATIENT
  Age: 50 Year
  Sex: Male

DRUGS (4)
  1. APTIVUS/RITONAVIR CAPSULES [Suspect]
     Dates: end: 20070801
  2. TRUVADA [Suspect]
     Dates: start: 20070101, end: 20070801
  3. RALTEGRAVIR [Suspect]
     Dates: start: 20070101, end: 20070801
  4. RITONAVIR [Concomitant]
     Dates: start: 20070101, end: 20070801

REACTIONS (3)
  - BLOOD BILIRUBIN INCREASED [None]
  - HEPATIC STEATOSIS [None]
  - JAUNDICE [None]
